FAERS Safety Report 9686161 (Version 1)
Quarter: 2013Q4

REPORT INFORMATION
  Report Type: Spontaneous
  Country: PL (occurrence: PL)
  Receive Date: 20131113
  Receipt Date: 20131113
  Transmission Date: 20140711
  Serious: Yes (Death, Hospitalization)
  Sender: FDA-Public Use
  Company Number: PL-WATSON-2013-20119

PATIENT
  Age: 57 Year
  Sex: Male

DRUGS (2)
  1. VERAPAMIL (UNKNOWN) [Suspect]
     Indication: COMPLETED SUICIDE
     Dosage: UNK
     Route: 065
     Dates: start: 2010
  2. VERAPAMIL (UNKNOWN) [Suspect]
     Indication: INTENTIONAL OVERDOSE

REACTIONS (4)
  - Sudden cardiac death [Fatal]
  - Completed suicide [Fatal]
  - Intentional overdose [Fatal]
  - Toxicity to various agents [Fatal]
